FAERS Safety Report 4455175-5 (Version None)
Quarter: 2004Q3

REPORT INFORMATION
  Report Type: 
  Country: None (occurrence: None)
  Receive Date: 20040917
  Receipt Date: 20040831
  Transmission Date: 20050211
  Serious: Yes (Other)
  Sender: FDA-Public Use
  Company Number: JP_040804310

PATIENT
  Age: 77 Year
  Sex: Male

DRUGS (2)
  1. GEMZAR [Suspect]
     Indication: HEPATIC NEOPLASM
  2. FLUOROURACIL [Concomitant]

REACTIONS (3)
  - DUODENAL ULCER [None]
  - ISCHAEMIA [None]
  - MUCOUS MEMBRANE DISORDER [None]
